FAERS Safety Report 12196742 (Version 2)
Quarter: 2016Q2

REPORT INFORMATION
  Report Type: Report from Study
  Country: US (occurrence: US)
  Receive Date: 20160321
  Receipt Date: 20160405
  Transmission Date: 20160815
  Serious: Yes (Hospitalization)
  Sender: FDA-Public Use
  Company Number: US-ACTELION-A-NJ2016-133027

PATIENT
  Age: 19 Month
  Sex: Male

DRUGS (16)
  1. ATOVAQUONE. [Concomitant]
     Active Substance: ATOVAQUONE
     Dosage: 1.8 ML, QD
     Route: 048
     Dates: start: 20150618
  2. ZAVESCA [Suspect]
     Active Substance: MIGLUSTAT
     Indication: GAUCHER^S DISEASE
     Dosage: 100 MG, QD
     Route: 048
     Dates: start: 20150618
  3. ASPIRIN (E.C.) [Concomitant]
     Active Substance: ASPIRIN
     Dosage: 0.5 UNK, QD
     Route: 048
     Dates: start: 20150618
  4. MAGONATE [Concomitant]
     Active Substance: MAGNESIUM CARBONATE
     Dosage: 2.5 ML, Q8HRS
     Route: 048
     Dates: start: 20150618
  5. VITAMIN D3 [Concomitant]
     Active Substance: CHOLECALCIFEROL
     Dosage: 2.5 ML, QD
     Route: 048
     Dates: start: 20150618
  6. PREDNISOLONE. [Concomitant]
     Active Substance: PREDNISOLONE
     Dosage: 2 ML, QD
     Route: 048
     Dates: start: 20150618
  7. LANSOPRAZOLE. [Concomitant]
     Active Substance: LANSOPRAZOLE
     Dosage: 2.5 ML, QD
     Route: 048
     Dates: start: 20150618
  8. IRON COMPLEX [Concomitant]
     Dosage: 0.5 ML, QD
     Route: 048
     Dates: start: 20150618
  9. ZAVESCA [Suspect]
     Active Substance: MIGLUSTAT
     Indication: LIPIDOSIS
  10. METOCLOPRAMIDE. [Concomitant]
     Active Substance: METOCLOPRAMIDE
     Dosage: 1.3 ML, BID
     Route: 048
     Dates: start: 20150618
  11. AMLODIPINE [Concomitant]
     Active Substance: AMLODIPINE BESYLATE
     Dosage: 0.5 TAB, QD
     Route: 048
     Dates: start: 20150618
  12. MEDIUM-CHAIN TRIGLYCERIDES [Concomitant]
     Active Substance: MEDIUM-CHAIN TRIGLYCERIDES
     Dosage: 2.5 ML, QD
     Route: 048
     Dates: start: 20150618
  13. NYSTATIN. [Concomitant]
     Active Substance: NYSTATIN
     Dosage: 1 ML, TID
     Route: 048
     Dates: start: 20150618
  14. ZAVESCA [Suspect]
     Active Substance: MIGLUSTAT
     Indication: NIEMANN-PICK DISEASE
  15. VALCYTE [Concomitant]
     Active Substance: VALGANCICLOVIR HYDROCHLORIDE
     Dosage: 3.5 ML, QD
     Route: 048
     Dates: start: 20150618
  16. PROGRAFT [Concomitant]
     Active Substance: TACROLIMUS
     Dosage: UNK

REACTIONS (2)
  - Intestinal obstruction [Recovering/Resolving]
  - Liver transplant [Unknown]

NARRATIVE: CASE EVENT DATE: 20160209
